FAERS Safety Report 12613009 (Version 3)
Quarter: 2019Q1

REPORT INFORMATION
  Report Type: Spontaneous
  Country: IN (occurrence: IN)
  Receive Date: 20160802
  Receipt Date: 20190311
  Transmission Date: 20190417
  Serious: Yes (Other)
  Sender: FDA-Public Use
  Company Number: IN-CIPLA LTD.-2016IN10098

PATIENT

DRUGS (5)
  1. PERMETHRIN. [Concomitant]
     Active Substance: PERMETHRIN
     Indication: ACARODERMATITIS
     Dosage: UNK
     Route: 061
  2. RANTAC [Concomitant]
     Active Substance: RANITIDINE HYDROCHLORIDE
     Indication: DYSPEPSIA
     Dosage: 150 MG, BID, TABLET
     Route: 065
     Dates: start: 20151003
  3. LEVORIDE [Suspect]
     Active Substance: LEVOSULPIRIDE
     Indication: ACARODERMATITIS
     Dosage: 5 MILLIGRAM, QD (FOR 3 DAYS)
     Route: 065
     Dates: start: 20151005, end: 20151005
  4. VERMACT [Concomitant]
     Indication: PRODUCT USED FOR UNKNOWN INDICATION
     Dosage: 12 MILLIGRAM, SINGLE (STAT), TABLET
     Route: 065
     Dates: start: 20151003
  5. CETIRIZINE [Suspect]
     Active Substance: CETIRIZINE HYDROCHLORIDE
     Indication: ACARODERMATITIS
     Dosage: UNK
     Route: 048

REACTIONS (1)
  - Fixed eruption [Recovered/Resolved]

NARRATIVE: CASE EVENT DATE: 201509
